FAERS Safety Report 23938099 (Version 1)
Quarter: 2024Q2

REPORT INFORMATION
  Report Type: Spontaneous
  Country: CA (occurrence: CA)
  Receive Date: 20240604
  Receipt Date: 20240604
  Transmission Date: 20240716
  Serious: Yes (Other)
  Sender: FDA-Public Use
  Company Number: CA-002147023-NVSC2024CA113365

PATIENT
  Sex: Female

DRUGS (1)
  1. ALPELISIB [Suspect]
     Active Substance: ALPELISIB
     Indication: Endometrial cancer recurrent
     Dosage: 300 MG, QD
     Route: 048

REACTIONS (5)
  - Malignant neoplasm progression [Unknown]
  - Endometrial cancer recurrent [Unknown]
  - PIK3CA-activated mutation [Unknown]
  - Therapy partial responder [Unknown]
  - Off label use [Unknown]
